FAERS Safety Report 12774708 (Version 1)
Quarter: 2016Q3

REPORT INFORMATION
  Report Type: Spontaneous
  Country: GB (occurrence: GB)
  Receive Date: 20160923
  Receipt Date: 20160923
  Transmission Date: 20161109
  Serious: Yes (Life-Threatening, Hospitalization)
  Sender: FDA-Public Use
  Company Number: GB-TEVA-693716ACC

PATIENT
  Age: 85 Year
  Sex: Female
  Weight: 86 kg

DRUGS (10)
  1. OMEPRAZOLE. [Concomitant]
     Active Substance: OMEPRAZOLE
  2. PRAVASTATIN. [Concomitant]
     Active Substance: PRAVASTATIN
  3. RIVASTIGMINE. [Concomitant]
     Active Substance: RIVASTIGMINE
  4. ASPIRIN. [Concomitant]
     Active Substance: ASPIRIN
  5. CANDESARTAN [Concomitant]
     Active Substance: CANDESARTAN
  6. ISOTARD XL [Concomitant]
  7. NICORANDIL [Concomitant]
     Active Substance: NICORANDIL
  8. SERTRALINE [Suspect]
     Active Substance: SERTRALINE HYDROCHLORIDE
     Indication: ANXIETY
     Route: 048
     Dates: start: 20160616, end: 20160622
  9. DOCUSATE [Concomitant]
     Active Substance: DOCUSATE
  10. MIRTAZAPINE. [Concomitant]
     Active Substance: MIRTAZAPINE

REACTIONS (2)
  - Vomiting [Recovered/Resolved with Sequelae]
  - Pneumonia aspiration [Recovered/Resolved with Sequelae]

NARRATIVE: CASE EVENT DATE: 20160618
